FAERS Safety Report 14677623 (Version 1)
Quarter: 2018Q1

REPORT INFORMATION
  Report Type: Spontaneous
  Country: US (occurrence: US)
  Receive Date: 20180324
  Receipt Date: 20180324
  Transmission Date: 20180509
  Serious: Yes (Other)
  Sender: FDA-Public Use
  Company Number: None

PATIENT
  Age: 20 Year
  Sex: Male

DRUGS (2)
  1. NOT REPORTED [Concomitant]
  2. STELARA [Suspect]
     Active Substance: USTEKINUMAB
     Indication: PSORIASIS
     Dosage: ?          OTHER FREQUENCY:ON WK 0 AND WK 4;?
     Route: 058
     Dates: start: 20171229

REACTIONS (3)
  - Concussion [None]
  - Alcohol use [None]
  - Laceration [None]

NARRATIVE: CASE EVENT DATE: 20180301
